FAERS Safety Report 6539112-5 (Version None)
Quarter: 2010Q1

REPORT INFORMATION
  Report Type: 
  Country: None (occurrence: None)
  Receive Date: 20100115
  Receipt Date: 20100113
  Transmission Date: 20100710
  Serious: Yes (Life-Threatening, Hospitalization)
  Sender: FDA-Public Use
  Company Number: PHEH2009US16597

PATIENT

DRUGS (4)
  1. RECLAST [Suspect]
  2. CALCIUM CARBONATE W/COLECALCIFEROL [Suspect]
  3. OXYCODONE [Suspect]
     Dosage: 20-40 MG BID
  4. MORPHINE [Suspect]
     Dosage: 50 MG, BID

REACTIONS (2)
  - CONSTIPATION [None]
  - FEELING ABNORMAL [None]
